FAERS Safety Report 25014096 (Version 1)
Quarter: 2025Q1

REPORT INFORMATION
  Report Type: Spontaneous
  Country: DE (occurrence: DE)
  Receive Date: 20250226
  Receipt Date: 20250226
  Transmission Date: 20250408
  Serious: Yes (Hospitalization, Other)
  Sender: NOVA LABORATORIES LIMITED
  Company Number: DE-Nova Laboratories Limited-2171795

PATIENT
  Age: 12 Year
  Sex: Female

DRUGS (4)
  1. PURIXAN [Suspect]
     Active Substance: MERCAPTOPURINE
     Indication: Acute lymphocytic leukaemia
  2. CYTARABINE [Suspect]
     Active Substance: CYTARABINE
  3. MERCAPTOPURINE [Suspect]
     Active Substance: MERCAPTOPURINE
  4. THIOGUANINE [Concomitant]
     Active Substance: THIOGUANINE

REACTIONS (1)
  - Venoocclusive liver disease [Recovered/Resolved]
